FAERS Safety Report 8961131 (Version 1)
Quarter: 2012Q4

REPORT INFORMATION
  Report Type: Report from Study
  Country: LT (occurrence: LT)
  Receive Date: 20121213
  Receipt Date: 20121213
  Transmission Date: 20130627
  Serious: Yes (Hospitalization)
  Sender: FDA-Public Use
  Company Number: PHHO2011LT02606

PATIENT
  Age: 67 Year
  Sex: Male
  Weight: 95 kg

DRUGS (4)
  1. ACZ885 [Suspect]
     Indication: GOUT
     Dosage: 150 mg, UNK
     Route: 058
     Dates: start: 20100907
  2. NOLIPREL [Concomitant]
     Indication: HYPERTENSION
     Dosage: 1 DF (5/125 mg), UNK
     Route: 048
     Dates: start: 20020601
  3. ALLOPURINOL [Concomitant]
     Indication: GOUT
     Dosage: 300 mg, BID
     Route: 048
     Dates: start: 20091215
  4. OMEPRAZOL [Concomitant]
     Indication: GASTROOESOPHAGEAL REFLUX DISEASE
     Dosage: 20 mg, BID
     Route: 048
     Dates: start: 20100401

REACTIONS (6)
  - Colon cancer [Recovered/Resolved]
  - Large intestine polyp [Recovered/Resolved]
  - Leiomyoma [Recovered/Resolved]
  - Diverticulum intestinal [Recovered/Resolved]
  - Erosive duodenitis [Recovered/Resolved]
  - Pelvic pain [Recovered/Resolved]
